FAERS Safety Report 10226395 (Version 1)
Quarter: 2014Q2

REPORT INFORMATION
  Report Type: Spontaneous
  Country: US (occurrence: US)
  Receive Date: 20140609
  Receipt Date: 20140609
  Transmission Date: 20141212
  Serious: No
  Sender: FDA-Public Use
  Company Number: US-AMGEN INC.-USASP2013051578

PATIENT
  Age: 62 Year
  Sex: Male

DRUGS (5)
  1. PROCRIT [Suspect]
     Indication: ANAEMIA
     Dosage: UNK
     Route: 065
  2. INCIVEK [Suspect]
     Indication: HEPATITIS C
     Dosage: UNK
     Route: 048
     Dates: start: 20130308, end: 20130531
  3. PEGASYS [Suspect]
     Indication: HEPATITIS C
     Dosage: UNK
     Route: 058
     Dates: start: 20130308
  4. RIBAVIRIN [Suspect]
     Indication: HEPATITIS C
     Dosage: 600 MG, QD
     Route: 048
     Dates: start: 20130308, end: 20130531
  5. FENOFIBRATE [Suspect]
     Indication: BLOOD TRIGLYCERIDES INCREASED
     Dosage: UNK

REACTIONS (4)
  - Haemoglobin abnormal [Recovering/Resolving]
  - White blood cell count decreased [Not Recovered/Not Resolved]
  - Pruritus [Not Recovered/Not Resolved]
  - Rash [Not Recovered/Not Resolved]
